FAERS Safety Report 6317362-0 (Version None)
Quarter: 2009Q3

REPORT INFORMATION
  Report Type: 
  Country: None (occurrence: None)
  Receive Date: 20090821
  Receipt Date: 20090812
  Transmission Date: 20100115
  Serious: Yes (Hospitalization)
  Sender: FDA-Public Use
  Company Number: US-BIOGENIDEC-2009BI025614

PATIENT
  Age: 53 Year
  Sex: Female

DRUGS (2)
  1. AVONEX [Suspect]
     Indication: MULTIPLE SCLEROSIS
     Route: 030
     Dates: start: 20000918, end: 20030801
  2. AVONEX [Suspect]
     Route: 030
     Dates: start: 20030801

REACTIONS (13)
  - BLOOD POTASSIUM DECREASED [None]
  - GENITAL INFECTION FEMALE [None]
  - HALLUCINATION [None]
  - HYPOPHAGIA [None]
  - IRRITABILITY [None]
  - KIDNEY INFECTION [None]
  - NEPHROLITHIASIS [None]
  - OBSTRUCTIVE UROPATHY [None]
  - PYREXIA [None]
  - TREMOR [None]
  - URETHRAL OBSTRUCTION [None]
  - URINARY RETENTION [None]
  - VOMITING [None]
